FAERS Safety Report 4503939-1 (Version None)
Quarter: 2004Q4

REPORT INFORMATION
  Report Type: 
  Country: None (occurrence: None)
  Receive Date: 20041112
  Receipt Date: 20041103
  Transmission Date: 20050328
  Serious: Yes (Other)
  Sender: FDA-Public Use
  Company Number: 2004243272US

PATIENT
  Age: 65 Year
  Sex: Female

DRUGS (3)
  1. PROVERA [Suspect]
  2. PREMARIN [Suspect]
  3. CYCRIN [Suspect]

REACTIONS (1)
  - BREAST CANCER FEMALE [None]
